FAERS Safety Report 6121206-X (Version None)
Quarter: 2009Q1

REPORT INFORMATION
  Report Type: 
  Country: None (occurrence: None)
  Receive Date: 20090312
  Receipt Date: 20090312
  Transmission Date: 20090719
  Serious: No
  Sender: FDA-Public Use
  Company Number: None

PATIENT
  Sex: Female
  Weight: 70.3075 kg

DRUGS (2)
  1. PROSED/DS-ATROPINE FREE- NA FERRING [Suspect]
     Indication: DYSURIA
     Dosage: ONE TABLET EVERY 6 TO 8 HRS. PO
     Route: 048
     Dates: start: 20090220, end: 20090220
  2. PROSED/DS-ATROPINE FREE- NA FERRING [Suspect]
     Indication: URINARY TRACT PAIN
     Dosage: ONE TABLET EVERY 6 TO 8 HRS. PO
     Route: 048
     Dates: start: 20090220, end: 20090220

REACTIONS (4)
  - ABNORMAL FAECES [None]
  - DIARRHOEA [None]
  - FLATULENCE [None]
  - RASH [None]
